FAERS Safety Report 7894909-4 (Version None)
Quarter: 2011Q4

REPORT INFORMATION
  Report Type: 
  Country: None (occurrence: None)
  Receive Date: 20111106
  Receipt Date: 20110820
  Transmission Date: 20120403
  Serious: No
  Sender: FDA-Public Use
  Company Number: US-AMGEN-USASP2011042569

PATIENT
  Age: 48 Year
  Sex: Male

DRUGS (2)
  1. ENBREL [Suspect]
     Indication: PSORIATIC ARTHROPATHY
     Dosage: 50 MG, QWK
     Dates: start: 20110623, end: 20110701
  2. ENBREL [Suspect]
     Dosage: 50 MG, QWK
     Dates: start: 20110731

REACTIONS (7)
  - ABDOMINAL PAIN UPPER [None]
  - NAUSEA [None]
  - CHILLS [None]
  - VOMITING [None]
  - ASTHENIA [None]
  - INFLUENZA [None]
  - PYREXIA [None]
